FAERS Safety Report 9059282 (Version 1)
Quarter: 2013Q1

REPORT INFORMATION
  Report Type: Spontaneous
  Country: US (occurrence: US)
  Receive Date: 20130211
  Receipt Date: 20130211
  Transmission Date: 20140127
  Serious: Yes (Hospitalization)
  Sender: FDA-Public Use
  Company Number: US-ELI_LILLY_AND_COMPANY-US201301002759

PATIENT
  Sex: Female

DRUGS (2)
  1. ADCIRCA [Suspect]
  2. LETAIRIS [Concomitant]
     Indication: PULMONARY HYPERTENSION
     Dosage: 10 MG, QD
     Route: 048
     Dates: start: 20120510

REACTIONS (2)
  - Atrial septal defect [Unknown]
  - Anomalous pulmonary venous connection [Unknown]
